FAERS Safety Report 10175242 (Version 1)
Quarter: 2014Q2

REPORT INFORMATION
  Report Type: Spontaneous
  Country: US (occurrence: US)
  Receive Date: 20140515
  Receipt Date: 20140515
  Transmission Date: 20141212
  Serious: No
  Sender: FDA-Public Use
  Company Number: US-VIVUS-2014V1000118

PATIENT
  Age: 58 Year
  Sex: Female
  Weight: 76.73 kg

DRUGS (8)
  1. QSYMIA 3.75MG/23MG [Suspect]
     Indication: WEIGHT DECREASED
     Route: 048
     Dates: start: 201403
  2. METHOTREXATE [Concomitant]
     Indication: RHEUMATOID ARTHRITIS
     Route: 048
  3. PREDNISONE [Concomitant]
     Indication: RHEUMATOID ARTHRITIS
     Dosage: TAPERING DOSE
     Route: 048
  4. HYDROXYCHLOROQUINE [Concomitant]
     Indication: PRODUCT USED FOR UNKNOWN INDICATION
     Route: 048
  5. TYLENOL WITH CODEINE [Concomitant]
     Indication: RHEUMATOID ARTHRITIS
     Dosage: 30/300 MG
     Route: 048
  6. CYMBALTA [Concomitant]
     Indication: ARTHRITIS
     Route: 048
     Dates: start: 2013
  7. CYMBALTA [Concomitant]
     Indication: BONE PAIN
  8. UNSPECIFIED VITAMINS [Concomitant]
     Indication: VITAMIN SUPPLEMENTATION
     Route: 048

REACTIONS (2)
  - Somnolence [Not Recovered/Not Resolved]
  - Fatigue [Not Recovered/Not Resolved]
